FAERS Safety Report 9395665 (Version 1)
Quarter: 2013Q3

REPORT INFORMATION
  Report Type: Spontaneous
  Country: FR (occurrence: FR)
  Receive Date: 20130711
  Receipt Date: 20130711
  Transmission Date: 20140515
  Serious: Yes (Other)
  Sender: FDA-Public Use
  Company Number: FR-TEVA-417869ISR

PATIENT
  Age: 80 Year
  Sex: Male

DRUGS (7)
  1. VERAPAMIL [Suspect]
     Indication: CARDIAC DISORDER
     Dosage: 1 DOSAGE FORMS DAILY; MORNING
  2. PRADAXA [Suspect]
     Dosage: 2 DOSAGE FORMS DAILY; FOR 3-4 MONTHS (MORNING AND EVENING)
     Dates: start: 2013
  3. FORTZAAR [Concomitant]
     Dosage: 25 MILLIGRAM DAILY; MORNING
  4. TAHOR [Concomitant]
  5. ESIDREX [Concomitant]
     Dosage: 12.5 MILLIGRAM DAILY; MORNING
  6. GLYCERIN [Concomitant]
     Dosage: EVENING
  7. IMIQUIMOD [Concomitant]
     Dosage: MORNING

REACTIONS (1)
  - Haematochezia [Unknown]
